FAERS Safety Report 12948285 (Version 2)
Quarter: 2016Q4

REPORT INFORMATION
  Report Type: Report from Study
  Country: US (occurrence: US)
  Receive Date: 20161117
  Receipt Date: 20161124
  Transmission Date: 20170207
  Serious: Yes (Other)
  Sender: FDA-Public Use
  Company Number: US-GILEAD-2016-0236007

PATIENT
  Age: 49 Year
  Sex: Female

DRUGS (4)
  1. REMODULIN [Suspect]
     Active Substance: TREPROSTINIL
     Dosage: UNK
     Route: 058
  2. COUMADIN [Suspect]
     Active Substance: WARFARIN SODIUM
     Indication: PRODUCT USED FOR UNKNOWN INDICATION
     Route: 065
  3. AMBRISENTAN [Suspect]
     Active Substance: AMBRISENTAN
     Indication: PRODUCT USED FOR UNKNOWN INDICATION
     Dosage: 10 MG, QD
     Route: 065
     Dates: start: 20090601
  4. REMODULIN [Suspect]
     Active Substance: TREPROSTINIL
     Indication: PRODUCT USED FOR UNKNOWN INDICATION
     Dosage: UNK
     Route: 042

REACTIONS (13)
  - Infusion site induration [Not Recovered/Not Resolved]
  - Infusion site haemorrhage [Unknown]
  - Infusion site pain [Not Recovered/Not Resolved]
  - Flushing [Unknown]
  - Thrombosis [Unknown]
  - Infusion site discharge [Not Recovered/Not Resolved]
  - Infusion site abscess [Unknown]
  - Infusion site erythema [Not Recovered/Not Resolved]
  - Infusion site discolouration [Unknown]
  - Infusion site warmth [Unknown]
  - Diarrhoea [Not Recovered/Not Resolved]
  - Infusion site haematoma [Not Recovered/Not Resolved]
  - Nausea [Not Recovered/Not Resolved]
